FAERS Safety Report 5334481-6 (Version None)
Quarter: 2007Q2

REPORT INFORMATION
  Report Type: 
  Country: None (occurrence: None)
  Receive Date: 20070525
  Receipt Date: 20070514
  Transmission Date: 20071010
  Serious: Yes (Hospitalization, Other)
  Sender: FDA-Public Use
  Company Number: US-AMGEN-US224831

PATIENT
  Sex: Male

DRUGS (9)
  1. PROCRIT [Suspect]
     Indication: RENAL FAILURE CHRONIC
  2. FELODIPINE [Concomitant]
  3. SIMVASTATIN [Concomitant]
  4. SODIUM BICARBONATE [Concomitant]
  5. LASIX [Concomitant]
  6. NPH ILETIN II [Concomitant]
  7. COREG [Concomitant]
  8. ASPIRIN [Concomitant]
  9. ALBUTEROL [Concomitant]

REACTIONS (3)
  - APLASIA PURE RED CELL [None]
  - FLUID OVERLOAD [None]
  - RENAL FAILURE ACUTE [None]
